FAERS Safety Report 5918870-4 (Version None)
Quarter: 2008Q4

REPORT INFORMATION
  Report Type: 
  Country: None (occurrence: None)
  Receive Date: 20081015
  Receipt Date: 20080909
  Transmission Date: 20090506
  Serious: No
  Sender: FDA-Public Use
  Company Number: US-BAYER-200833628NA

PATIENT
  Age: 43 Year
  Sex: Female

DRUGS (5)
  1. OCELLA TABLETS [Suspect]
     Indication: ORAL CONTRACEPTION
     Route: 048
     Dates: start: 20080601
  2. MULTI-VITAMIN [Concomitant]
  3. DIGOXIN [Concomitant]
     Indication: ARRHYTHMIA
  4. ASPIRIN [Concomitant]
     Indication: ARRHYTHMIA
  5. FLAXSEED OIL [Concomitant]
     Indication: ARRHYTHMIA

REACTIONS (2)
  - GENITAL HAEMORRHAGE [None]
  - VAGINITIS BACTERIAL [None]
